FAERS Safety Report 8855134 (Version 1)
Quarter: 2012Q4

REPORT INFORMATION
  Report Type: 
  Country: US (occurrence: US)
  Receive Date: 20121023
  Receipt Date: 20121023
  Transmission Date: 20130627
  Serious: Yes (Other)
  Sender: FDA-Public Use
  Company Number: US-BAYER-2012-108301

PATIENT

DRUGS (1)
  1. BAYER ASPIRIN REGIMEN ADULT LOW STRENGTH [Suspect]
     Dosage: 1 UNK, UNK

REACTIONS (5)
  - Hypersensitivity [None]
  - Reaction to preservatives [None]
  - Food allergy [None]
  - Lip swelling [None]
  - Swollen tongue [None]
